FAERS Safety Report 24282524 (Version 1)
Quarter: 2024Q3

REPORT INFORMATION
  Report Type: Spontaneous
  Country: US (occurrence: None)
  Receive Date: 20240904
  Receipt Date: 20240904
  Transmission Date: 20241017
  Serious: No
  Sender: Public
  Company Number: None

PATIENT
  Age: 76 Year
  Sex: Female
  Weight: 59.4 kg

DRUGS (7)
  1. PAXLOVID [Suspect]
     Active Substance: NIRMATRELVIR\RITONAVIR
     Indication: COVID-19
     Dosage: 15 TABLETS TWICE A DAY ORAL
     Route: 048
     Dates: start: 20240829, end: 20240901
  2. Dionan [Concomitant]
  3. TIMOLOL MALEATE [Concomitant]
     Active Substance: TIMOLOL MALEATE
  4. Timolol Ipratropium Bromide [Concomitant]
  5. AIRBORNE [Concomitant]
  6. CALCIUM [Concomitant]
     Active Substance: CALCIUM
  7. MINERALS\VITAMINS [Concomitant]
     Active Substance: MINERALS\VITAMINS

REACTIONS (6)
  - Diarrhoea [None]
  - Palpitations [None]
  - Decreased appetite [None]
  - Headache [None]
  - Fatigue [None]
  - Depression [None]

NARRATIVE: CASE EVENT DATE: 20240829
